FAERS Safety Report 16707786 (Version 3)
Quarter: 2019Q4

REPORT INFORMATION
  Report Type: Report from Study
  Country: DE (occurrence: DE)
  Receive Date: 20190815
  Receipt Date: 20191106
  Transmission Date: 20200122
  Serious: Yes (Hospitalization)
  Sender: FDA-Public Use
  Company Number: DE-PFIZER INC-2019145777

PATIENT
  Sex: Female

DRUGS (14)
  1. KISQALI [Suspect]
     Active Substance: RIBOCICLIB
     Dosage: 400 MG, 1X/DAY
     Route: 048
     Dates: start: 20180420, end: 20180912
  2. L THYROXINE [Concomitant]
     Active Substance: LEVOTHYROXINE SODIUM
     Dosage: 75 OT, UNK
  3. PANTOZAL [Concomitant]
  4. KISQALI [Suspect]
     Active Substance: RIBOCICLIB
     Dosage: 400 MG, 1X/DAY
     Route: 048
     Dates: start: 20181227, end: 20190116
  5. KISQALI [Suspect]
     Active Substance: RIBOCICLIB
     Dosage: 400 MG, 1X/DAY
     Route: 048
     Dates: start: 20190502, end: 20190522
  6. KISQALI [Suspect]
     Active Substance: RIBOCICLIB
     Dosage: 400 MG, 1X/DAY
     Route: 048
     Dates: start: 20190711
  7. LISINOPRIL. [Concomitant]
     Active Substance: LISINOPRIL
  8. KISQALI [Suspect]
     Active Substance: RIBOCICLIB
     Dosage: 400 MG, 1X/DAY
     Route: 048
     Dates: start: 20180927, end: 20181212
  9. KISQALI [Suspect]
     Active Substance: RIBOCICLIB
     Dosage: 400 MG, 1X/DAY
     Route: 048
     Dates: start: 20190606, end: 20190626
  10. EXEMESTANE. [Suspect]
     Active Substance: EXEMESTANE
     Indication: BREAST CANCER
     Dosage: 25 MG, 1X/DAY (QD)
     Route: 048
     Dates: start: 20180505
  11. AMLODIPINE [Concomitant]
     Active Substance: AMLODIPINE BESYLATE
  12. KISQALI [Suspect]
     Active Substance: RIBOCICLIB
     Indication: BREAST CANCER
     Dosage: 600 MG, CYCLIC (DAY1-21)
     Route: 048
     Dates: start: 20180216, end: 20180411
  13. KISQALI [Suspect]
     Active Substance: RIBOCICLIB
     Dosage: 400 MG, 1X/DAY
     Route: 048
     Dates: start: 20190131, end: 20190417
  14. LETROZOLE. [Suspect]
     Active Substance: LETROZOLE
     Indication: BREAST CANCER
     Dosage: 2.5 MG, 1X/DAY (QD)
     Route: 048
     Dates: start: 20180216, end: 20180504

REACTIONS (3)
  - Eructation [Unknown]
  - Decreased appetite [Unknown]
  - Haemorrhagic erosive gastritis [Recovered/Resolved]

NARRATIVE: CASE EVENT DATE: 20180516
